FAERS Safety Report 6232643-7 (Version None)
Quarter: 2009Q2

REPORT INFORMATION
  Report Type: 
  Country: None (occurrence: None)
  Receive Date: 20090615
  Receipt Date: 20090615
  Transmission Date: 20091009
  Serious: Yes (Disabling)
  Sender: FDA-Public Use
  Company Number: None

PATIENT
  Sex: Male
  Weight: 45.3597 kg

DRUGS (1)
  1. LEVAQUIN [Suspect]
     Indication: PNEUMONITIS
     Dosage: 1 PER DAY 5 DAYS
     Dates: start: 20090413, end: 20090418

REACTIONS (2)
  - IMPAIRED WORK ABILITY [None]
  - TENDON RUPTURE [None]
